FAERS Safety Report 12284752 (Version 1)
Quarter: 2016Q2

REPORT INFORMATION
  Report Type: Spontaneous
  Country: CO (occurrence: CO)
  Receive Date: 20160420
  Receipt Date: 20160420
  Transmission Date: 20160815
  Serious: Yes (Hospitalization, Other)
  Sender: FDA-Public Use
  Company Number: CO-AMGEN-COLSP2016049427

PATIENT
  Age: 63 Year
  Sex: Male

DRUGS (1)
  1. ENBREL [Suspect]
     Active Substance: ETANERCEPT
     Indication: PSORIASIS
     Dosage: 50 MG, WEEKLY
     Route: 058
     Dates: start: 201504

REACTIONS (1)
  - Inguinal hernia [Recovering/Resolving]

NARRATIVE: CASE EVENT DATE: 20160219
